FAERS Safety Report 9385288 (Version 1)
Quarter: 2013Q3

REPORT INFORMATION
  Report Type: Report from Study
  Country: US (occurrence: US)
  Receive Date: 20130705
  Receipt Date: 20130705
  Transmission Date: 20140515
  Serious: Yes (Hospitalization)
  Sender: FDA-Public Use
  Company Number: US-ABBOTT-13P-163-1112684-00

PATIENT
  Age: 40 Year
  Sex: Female

DRUGS (9)
  1. HUMIRA [Suspect]
     Indication: COLITIS ULCERATIVE
     Dates: start: 20130402, end: 20130528
  2. SYNTHROID [Concomitant]
     Indication: HYPOTHYROIDISM
  3. ASACOL [Concomitant]
     Indication: COLITIS ULCERATIVE
     Dosage: 2 TABS, 3 TIMES DAILY
  4. CANASA [Concomitant]
     Indication: COLITIS ULCERATIVE
  5. ZANTAC [Concomitant]
     Indication: GASTROOESOPHAGEAL REFLUX DISEASE
  6. TYLENOL [Concomitant]
     Indication: PRODUCT USED FOR UNKNOWN INDICATION
     Dosage: 2 TABS, AS NEEDED
  7. PREDNISONE [Concomitant]
     Indication: PRODUCT USED FOR UNKNOWN INDICATION
  8. PREDNISONE [Concomitant]
  9. PREDNISONE [Concomitant]
     Dosage: TO TAPER DOWN 5 MG PER WEEK

REACTIONS (12)
  - Blood pressure immeasurable [Recovered/Resolved]
  - Hypotension [Recovered/Resolved]
  - Confusional state [Recovered/Resolved]
  - Adverse drug reaction [Recovered/Resolved]
  - Body temperature decreased [Recovered/Resolved]
  - Dehydration [Recovered/Resolved]
  - Fall [Recovered/Resolved]
  - Rash erythematous [Recovered/Resolved]
  - Rash macular [Recovered/Resolved]
  - Blood sodium decreased [Recovered/Resolved]
  - Blood potassium decreased [Recovered/Resolved]
  - Blood calcium increased [Recovered/Resolved]
